FAERS Safety Report 10956350 (Version 1)
Quarter: 2015Q1

REPORT INFORMATION
  Report Type: Spontaneous
  Country: FR (occurrence: FR)
  Receive Date: 20150326
  Receipt Date: 20150326
  Transmission Date: 20150721
  Serious: Yes (Death, Hospitalization)
  Sender: FDA-Public Use
  Company Number: FR-SA-2014SA178076

PATIENT
  Age: 63 Year
  Sex: Male

DRUGS (20)
  1. ATROVENT [Concomitant]
     Active Substance: IPRATROPIUM BROMIDE
     Dosage: 0.5 MG/2 ML SOLUTION FOR INHALATION
     Route: 055
     Dates: start: 20141114, end: 20141219
  2. LOVENOX [Suspect]
     Active Substance: ENOXAPARIN SODIUM
     Indication: PROPHYLAXIS
     Route: 058
     Dates: start: 20141114, end: 20141121
  3. CONTRAMAL [Concomitant]
     Active Substance: TRAMADOL HYDROCHLORIDE
     Route: 048
     Dates: start: 20141114, end: 20141219
  4. VENTOLINE [Concomitant]
     Active Substance: ALBUTEROL
     Dosage: 5 MG/2.5 ML SOLUTION FOR INHALATION BY NEBULIZATOR UNIT DOSE
     Route: 055
     Dates: start: 20141114, end: 20141219
  5. TAZOCILLINE [Concomitant]
     Active Substance: PIPERACILLIN SODIUM\TAZOBACTAM SODIUM
     Dosage: STRENGTH: 4 G
     Route: 042
     Dates: start: 20141117, end: 20141123
  6. AUGMENTIN [Concomitant]
     Active Substance: AMOXICILLIN\CLAVULANATE POTASSIUM
     Dates: start: 20141117, end: 20141117
  7. AOTAL [Concomitant]
     Active Substance: ACAMPROSATE CALCIUM
     Route: 048
     Dates: start: 20141114, end: 20141117
  8. ZYRTEC [Concomitant]
     Active Substance: CETIRIZINE HYDROCHLORIDE
     Route: 048
     Dates: start: 20141114, end: 20141124
  9. CORDARONE [Concomitant]
     Active Substance: AMIODARONE HYDROCHLORIDE
     Dosage: STREGTH:200 MG
     Route: 048
     Dates: start: 201411, end: 201412
  10. AZANTAC [Concomitant]
     Active Substance: RANITIDINE HYDROCHLORIDE
     Dosage: 50 MG INJECTABLE SOLUTION
     Dates: start: 20141117, end: 20141127
  11. HEPARIN SODIUM. [Suspect]
     Active Substance: HEPARIN SODIUM
     Indication: ATRIAL FIBRILLATION
     Route: 042
     Dates: start: 20141121, end: 20141125
  12. BECILAN [Concomitant]
     Active Substance: PYRIDOXINE
     Route: 048
     Dates: start: 20141114, end: 20141219
  13. DOLIPRANE [Concomitant]
     Active Substance: ACETAMINOPHEN
     Route: 048
     Dates: start: 20141114, end: 20141219
  14. AUGMENTIN [Concomitant]
     Active Substance: AMOXICILLIN\CLAVULANATE POTASSIUM
     Dates: start: 20141124
  15. LOVENOX [Suspect]
     Active Substance: ENOXAPARIN SODIUM
     Indication: PROPHYLAXIS
     Route: 058
     Dates: start: 20141125, end: 20141201
  16. VALIUM [Concomitant]
     Active Substance: DIAZEPAM
     Dosage: STRENGTH: 10 MG
     Route: 048
     Dates: start: 20141114, end: 20141219
  17. BEVITINE [Concomitant]
     Active Substance: THIAMINE
     Route: 048
     Dates: start: 20141114, end: 20141219
  18. CORTANCYL [Concomitant]
     Active Substance: PREDNISONE
     Dosage: STRENGTH:60 MG
     Route: 048
     Dates: start: 20141114, end: 20141117
  19. ELISOR [Concomitant]
     Active Substance: PRAVASTATIN SODIUM
     Route: 048
     Dates: start: 20141114, end: 20141124
  20. AMIKLIN [Concomitant]
     Active Substance: AMIKACIN SULFATE
     Route: 042
     Dates: start: 20141118, end: 20141118

REACTIONS (4)
  - Cerebrovascular accident [Fatal]
  - Heparin-induced thrombocytopenia [Recovered/Resolved]
  - Skin necrosis [Not Recovered/Not Resolved]
  - Deep vein thrombosis [Fatal]

NARRATIVE: CASE EVENT DATE: 20141201
